FAERS Safety Report 19302157 (Version 1)
Quarter: 2021Q2

REPORT INFORMATION
  Report Type: Spontaneous
  Country: US (occurrence: US)
  Receive Date: 20210525
  Receipt Date: 20210525
  Transmission Date: 20210717
  Serious: Yes (Hospitalization)
  Sender: FDA-Public Use
  Company Number: None

PATIENT
  Sex: Male

DRUGS (1)
  1. HYDROXYUREA. [Suspect]
     Active Substance: HYDROXYUREA
     Indication: POLYCYTHAEMIA VERA
     Dosage: ?          OTHER FREQUENCY:1 MWF / 2 TTSS;?
     Route: 048
     Dates: start: 20190801

REACTIONS (4)
  - Arrhythmia [None]
  - Device deployment issue [None]
  - Off label use [None]
  - Urinary tract infection [None]
